FAERS Safety Report 8932528 (Version 1)
Quarter: 2012Q4

REPORT INFORMATION
  Report Type: Spontaneous
  Country: US (occurrence: None)
  Receive Date: 20121126
  Receipt Date: 20121126
  Transmission Date: 20130627
  Serious: Yes (Other)
  Sender: FDA-Public Use
  Company Number: None

PATIENT
  Age: 62 Year
  Sex: Female
  Weight: 75.75 kg

DRUGS (1)
  1. NAPROSYN [Suspect]
     Indication: OSTEOARTHRITIS
     Dosage: 500  mg  Tab AMN   2 times a day   oral
     Route: 048
     Dates: start: 20120920, end: 20121002

REACTIONS (6)
  - Blister [None]
  - Pain [None]
  - Burning sensation [None]
  - Rash [None]
  - Erythema [None]
  - Feeling abnormal [None]
